FAERS Safety Report 16201310 (Version 1)
Quarter: 2019Q2

REPORT INFORMATION
  Report Type: Other
  Country: CN (occurrence: CN)
  Receive Date: 20190416
  Receipt Date: 20190416
  Transmission Date: 20190711
  Serious: Yes (Life-Threatening)
  Sender: FDA-Public Use
  Company Number: CN-JIANGSU HENGRUI MEDICINE CO., LTD.-2065872

PATIENT
  Age: 51 Year
  Sex: Female
  Weight: 50 kg

DRUGS (1)
  1. CISATRACURIUM BESYLATE INJECTION USP, 10 MG/5 ML (2 MG/ML) AND 200 MG/ [Suspect]
     Active Substance: CISATRACURIUM BESYLATE
     Indication: FRACTURE
     Route: 041
     Dates: start: 20190219, end: 20190219

REACTIONS (1)
  - Shock [Recovering/Resolving]

NARRATIVE: CASE EVENT DATE: 20190219
